FAERS Safety Report 10073178 (Version 1)
Quarter: 2014Q2

REPORT INFORMATION
  Report Type: Spontaneous
  Country: DE (occurrence: DE)
  Receive Date: 20140411
  Receipt Date: 20140411
  Transmission Date: 20141212
  Serious: Yes (Congenital Anomaly, Other)
  Sender: FDA-Public Use
  Company Number: DE-TEVA-472796GER

PATIENT
  Age: 1 Day
  Sex: Female

DRUGS (4)
  1. QUETIAPINE [Suspect]
     Route: 064
  2. QUILONUM RETARD [Suspect]
     Route: 064
  3. THIAMAZOLE [Suspect]
     Route: 064
  4. FOLSAEURE [Concomitant]
     Route: 064

REACTIONS (3)
  - Hypoaldosteronism [Not Recovered/Not Resolved]
  - Kidney duplex [Not Recovered/Not Resolved]
  - Large for dates baby [Unknown]
